FAERS Safety Report 4467248-1 (Version None)
Quarter: 2004Q4

REPORT INFORMATION
  Report Type: 
  Country: None (occurrence: None)
  Receive Date: 20041006
  Receipt Date: 20040519
  Transmission Date: 20050328
  Serious: Yes (Other)
  Sender: FDA-Public Use
  Company Number: JP-BRISTOL-MYERS SQUIBB COMPANY-12591749

PATIENT
  Age: 64 Year
  Sex: Female

DRUGS (6)
  1. MITOMYCIN-C BULK POWDER [Suspect]
     Indication: OVARIAN CANCER
     Dosage: THERAPY DATES: 10 MG  05-19 DEC 2003; 9 MG 27-JAN-09-FEB-2004
     Route: 042
     Dates: start: 20040324, end: 20040324
  2. TAXOL [Suspect]
     Indication: OVARIAN CANCER
     Route: 042
     Dates: start: 20040428, end: 20040428
  3. PARAPLATIN [Suspect]
     Indication: OVARIAN CANCER
     Dosage: THERAPY DATES: 300 MG ON 16-OCT-2003
     Route: 042
     Dates: start: 20040428, end: 20040428
  4. CISPLATIN [Suspect]
     Indication: OVARIAN CANCER
     Dosage: THERAPY DATES: 24-OCT TO 02-NOV-2003
     Route: 042
     Dates: start: 20031102, end: 20031102
  5. TOPOTECIN [Suspect]
     Indication: OVARIAN CANCER
     Dosage: THERAPY DATES: 190MG  05-19-DEC-03; 170MG 27-JAN-09-FEB-04
     Route: 042
     Dates: start: 20040309, end: 20040324
  6. AMLODIPINE [Concomitant]
     Indication: HYPERTENSION

REACTIONS (6)
  - BLOOD PRESSURE DECREASED [None]
  - BLOOD PRESSURE INADEQUATELY CONTROLLED [None]
  - CEREBRAL ISCHAEMIA [None]
  - DIZZINESS [None]
  - FALL [None]
  - LEUKOENCEPHALOPATHY [None]
